FAERS Safety Report 25548795 (Version 1)
Quarter: 2025Q3

REPORT INFORMATION
  Report Type: Other
  Country: JP (occurrence: JP)
  Receive Date: 20250714
  Receipt Date: 20250714
  Transmission Date: 20251020
  Serious: Yes (Death, Hospitalization)
  Sender: ANI
  Company Number: JP-ANIPHARMA-023535

PATIENT
  Age: 1 Month
  Sex: Female

DRUGS (3)
  1. VANCOMYCIN [Suspect]
     Active Substance: VANCOMYCIN
     Indication: Bordetella infection
  2. MEROPENEM [Concomitant]
     Active Substance: MEROPENEM
     Indication: Bordetella infection
  3. AZITHROMYCIN [Concomitant]
     Active Substance: AZITHROMYCIN
     Indication: Bordetella infection

REACTIONS (1)
  - Drug ineffective [Fatal]
